FAERS Safety Report 8180423-8 (Version None)
Quarter: 2012Q1

REPORT INFORMATION
  Report Type: 
  Country: None (occurrence: None)
  Receive Date: 20120302
  Receipt Date: 20120302
  Transmission Date: 20120608
  Serious: Yes (Disabling)
  Sender: FDA-Public Use
  Company Number: PT-PFIZER INC-2009194292

PATIENT
  Age: 32 Year
  Sex: Female

DRUGS (4)
  1. VENLAFAXINE HCL [Suspect]
     Dosage: UNK
  2. XANAX [Suspect]
     Dosage: UNK
  3. AMOXICILLIN AND CLAVULANATE POTASSIUM [Suspect]
     Indication: TOOTH INFECTION
     Dosage: UNK
     Dates: start: 20090101
  4. CLAVULANATE POTASSIUM [Suspect]
     Indication: TOOTH INFECTION
     Dosage: UNK
     Dates: start: 20090101

REACTIONS (2)
  - SOMNOLENCE [None]
  - ANXIETY [None]
